FAERS Safety Report 21536410 (Version 1)
Quarter: 2022Q4

REPORT INFORMATION
  Report Type: Spontaneous
  Country: DK (occurrence: DK)
  Receive Date: 20221101
  Receipt Date: 20221101
  Transmission Date: 20230112
  Serious: Yes (Hospitalization)
  Sender: FDA-Public Use
  Company Number: None

PATIENT
  Age: 22 Year
  Sex: Male

DRUGS (1)
  1. ENTYVIO [Suspect]
     Active Substance: VEDOLIZUMAB
     Indication: Crohn^s disease
     Dosage: 300 MILLIGRAM
     Route: 042
     Dates: start: 20200824, end: 202102

REACTIONS (10)
  - Myalgia [Recovered/Resolved]
  - Food aversion [Unknown]
  - Joint swelling [Recovered/Resolved]
  - Inflammation [Recovered/Resolved]
  - Malaise [Unknown]
  - Dizziness [Unknown]
  - Erythema [Recovered/Resolved]
  - Pyrexia [Unknown]
  - Nausea [Unknown]
  - Arthralgia [Recovered/Resolved]

NARRATIVE: CASE EVENT DATE: 20210101
